FAERS Safety Report 12397379 (Version 1)
Quarter: 2016Q2

REPORT INFORMATION
  Report Type: Spontaneous
  Country: US (occurrence: None)
  Receive Date: 20160523
  Receipt Date: 20160523
  Transmission Date: 20160815
  Serious: Yes (Disabling, Other)
  Sender: FDA-Public Use
  Company Number: None

PATIENT
  Age: 54 Year
  Sex: Female
  Weight: 68.04 kg

DRUGS (10)
  1. MULTI VITAMIN [Concomitant]
     Active Substance: VITAMINS
  2. PAQUENIL [Concomitant]
  3. COD LIVER OIL [Concomitant]
     Active Substance: COD LIVER OIL
  4. PROBIOTICS [Concomitant]
     Active Substance: PROBIOTICS NOS
  5. MECLAZINE [Concomitant]
  6. PAQUENIL [Concomitant]
  7. CALCIUM WITH MAGNESIUM [Concomitant]
  8. PROPOLIS [Concomitant]
     Active Substance: PROPOLIS WAX
  9. TURMERIC [Concomitant]
     Active Substance: TURMERIC
  10. LUPRON DEPOT [Suspect]
     Active Substance: LEUPROLIDE ACETATE
     Indication: ENDOMETRIOSIS
     Dosage: GIVEN INTO/UNDER THE SKIN
     Route: 058
     Dates: start: 20150812, end: 20160315

REACTIONS (9)
  - Nausea [None]
  - Tachycardia [None]
  - Vertigo [None]
  - Migraine [None]
  - Fibromyalgia [None]
  - Rheumatoid arthritis [None]
  - Dizziness [None]
  - Fatigue [None]
  - Impaired work ability [None]

NARRATIVE: CASE EVENT DATE: 20160222
